FAERS Safety Report 4357337-4 (Version None)
Quarter: 2004Q2

REPORT INFORMATION
  Report Type: 
  Country: None (occurrence: None)
  Receive Date: 20040506
  Receipt Date: 20040421
  Transmission Date: 20050107
  Serious: Yes (Hospitalization)
  Sender: FDA-Public Use
  Company Number: S04-USA-00096-01

PATIENT
  Age: 17 Year
  Sex: Female
  Weight: 48.9885 kg

DRUGS (6)
  1. CELEXA [Suspect]
     Indication: ANXIETY
     Dosage: 20 MG QD PO
     Route: 048
     Dates: start: 20030301, end: 20031014
  2. CELEXA [Suspect]
     Indication: ANXIETY
     Dosage: 30 MG QD PO
     Route: 048
     Dates: start: 20031015, end: 20031112
  3. CELEXA [Suspect]
     Indication: ANXIETY
     Dosage: 40 MG QD PO
     Route: 048
     Dates: start: 20031113, end: 20031118
  4. DEPAKOTE [Concomitant]
  5. EFFEXOR [Concomitant]
  6. SEROQUEL [Concomitant]

REACTIONS (9)
  - ACNE [None]
  - DEPRESSION [None]
  - FIBROMYALGIA [None]
  - INSOMNIA [None]
  - INTENTIONAL SELF-INJURY [None]
  - SUICIDAL IDEATION [None]
  - THINKING ABNORMAL [None]
  - TRICHOTILLOMANIA [None]
  - WEIGHT INCREASED [None]
